FAERS Safety Report 12252862 (Version 1)
Quarter: 2016Q2

REPORT INFORMATION
  Report Type: Spontaneous
  Country: US (occurrence: US)
  Receive Date: 20160411
  Receipt Date: 20160411
  Transmission Date: 20160815
  Serious: No
  Sender: FDA-Public Use
  Company Number: US-BAYER-2016-058506

PATIENT
  Age: 45 Year
  Sex: Female

DRUGS (2)
  1. CUBICIN [Concomitant]
     Active Substance: DAPTOMYCIN
     Dosage: UNK
  2. CIPROFLOXACIN. [Suspect]
     Active Substance: CIPROFLOXACIN
     Dosage: UNK

REACTIONS (1)
  - Product use issue [None]
